FAERS Safety Report 8318727 (Version 2)
Quarter: 2013Q1

REPORT INFORMATION
  Report Type: Spontaneous
  Country: US (occurrence: US)
  Receive Date: 20120103
  Receipt Date: 20130220
  Transmission Date: 20140127
  Serious: Yes (Life-Threatening, Congenital Anomaly, Other)
  Sender: FDA-Public Use
  Company Number: US-PFIZER INC-2011288486

PATIENT
  Sex: Male

DRUGS (3)
  1. ZOLOFT [Suspect]
     Dosage: UNK
     Route: 064
     Dates: start: 200001, end: 20001231
  2. PRENATAL VITAMINS [Concomitant]
     Dosage: UNK
     Route: 064
  3. WELLBUTRIN [Concomitant]
     Dosage: UNK
     Route: 064

REACTIONS (7)
  - Maternal exposure timing unspecified [Unknown]
  - Cleft palate [Unknown]
  - Congenital anomaly [Unknown]
  - Heart disease congenital [Unknown]
  - Cleft uvula [Unknown]
  - Transient tachypnoea of the newborn [Unknown]
  - Premature baby [Unknown]
